FAERS Safety Report 24333582 (Version 1)
Quarter: 2024Q3

REPORT INFORMATION
  Report Type: Spontaneous
  Country: CN (occurrence: CN)
  Receive Date: 20240918
  Receipt Date: 20240918
  Transmission Date: 20241017
  Serious: Yes (Life-Threatening)
  Sender: BAYER
  Company Number: CN-BAYER-2024A132952

PATIENT
  Age: 58 Year
  Sex: Female

DRUGS (2)
  1. STIVARGA [Suspect]
     Active Substance: REGORAFENIB MONOHYDRATE
     Indication: Colon neoplasm
     Dosage: 80 MG, QD
     Route: 048
     Dates: start: 20240808, end: 20240904
  2. TIPIRACIL HYDROCHLORIDE\TRIFLURIDINE [Suspect]
     Active Substance: TIPIRACIL HYDROCHLORIDE\TRIFLURIDINE
     Indication: Colon neoplasm
     Dosage: 40 MG, BID
     Route: 048
     Dates: start: 20240808, end: 20240812

REACTIONS (2)
  - Platelet count decreased [Recovering/Resolving]
  - Off label use [None]

NARRATIVE: CASE EVENT DATE: 20240808
